FAERS Safety Report 11769572 (Version 1)
Quarter: 2015Q4

REPORT INFORMATION
  Report Type: Report from Study
  Country: DE (occurrence: DE)
  Receive Date: 20151123
  Receipt Date: 20151123
  Transmission Date: 20160304
  Serious: Yes (Hospitalization, Other)
  Sender: FDA-Public Use
  Company Number: DE-ABBVIE-15K-062-1492452-00

PATIENT
  Age: 59 Year
  Sex: Female
  Weight: 80 kg

DRUGS (11)
  1. HUMIRA [Suspect]
     Active Substance: ADALIMUMAB
     Indication: RHEUMATOID ARTHRITIS
     Route: 058
     Dates: start: 20060109, end: 20150924
  2. METHOTREXATE [Suspect]
     Active Substance: METHOTREXATE
     Indication: PRODUCT USED FOR UNKNOWN INDICATION
     Route: 065
  3. CORTISONE [Concomitant]
     Active Substance: CORTISONE\HYDROCORTISONE
     Indication: PRODUCT USED FOR UNKNOWN INDICATION
  4. DEKRISTOL [Concomitant]
     Active Substance: CHOLECALCIFEROL
     Indication: PRODUCT USED FOR UNKNOWN INDICATION
  5. VITAMIN B6 [Concomitant]
     Active Substance: PYRIDOXINE HYDROCHLORIDE
     Indication: PRODUCT USED FOR UNKNOWN INDICATION
  6. DECORTIN [Concomitant]
     Active Substance: PREDNISONE
     Indication: PRODUCT USED FOR UNKNOWN INDICATION
  7. AMIADA [Concomitant]
     Indication: PRODUCT USED FOR UNKNOWN INDICATION
  8. IBUPROFEN. [Concomitant]
     Active Substance: IBUPROFEN
     Indication: PRODUCT USED FOR UNKNOWN INDICATION
  9. FOLIC ACID. [Concomitant]
     Active Substance: FOLIC ACID
     Indication: PRODUCT USED FOR UNKNOWN INDICATION
  10. MAGNESIUM [Concomitant]
     Active Substance: MAGNESIUM
     Indication: PRODUCT USED FOR UNKNOWN INDICATION
  11. PANTOZOL [Concomitant]
     Active Substance: PANTOPRAZOLE SODIUM
     Indication: PRODUCT USED FOR UNKNOWN INDICATION

REACTIONS (44)
  - Intraductal proliferative breast lesion [Unknown]
  - Jaundice [Not Recovered/Not Resolved]
  - Scoliosis [Unknown]
  - Spinal osteoarthritis [Unknown]
  - Diastolic dysfunction [Unknown]
  - Gastritis [Unknown]
  - Migraine [Unknown]
  - Chromaturia [Unknown]
  - Faeces pale [Unknown]
  - Pruritus [Unknown]
  - Gastrooesophageal heterotopia [Unknown]
  - Osteoarthritis [Unknown]
  - Toxicity to various agents [Unknown]
  - Platelet count decreased [Unknown]
  - Haemochromatosis [Unknown]
  - Blood glucose increased [Unknown]
  - Gastrooesophageal heterotopia [Unknown]
  - Bundle branch block left [Unknown]
  - Gastrooesophageal reflux disease [Unknown]
  - Malaise [Unknown]
  - Depression [Unknown]
  - Hepatic enzyme increased [Unknown]
  - Skin discolouration [Unknown]
  - Stress fracture [Unknown]
  - Fibula fracture [Unknown]
  - Hiatus hernia [Unknown]
  - Impaired healing [Unknown]
  - Onychomycosis [Unknown]
  - General physical health deterioration [Unknown]
  - Transferrin saturation increased [Unknown]
  - Blood iron increased [Unknown]
  - Serum ferritin increased [Unknown]
  - Dyspepsia [Unknown]
  - Meniscus operation [Unknown]
  - Bone fissure [Unknown]
  - Pneumonia [Unknown]
  - Gastric ulcer [Unknown]
  - Hepatic failure [Not Recovered/Not Resolved]
  - Muscle spasms [Unknown]
  - Kyphosis [Unknown]
  - Varices oesophageal [Unknown]
  - Meniscal degeneration [Unknown]
  - Discomfort [Unknown]
  - Hepatic steatosis [Unknown]

NARRATIVE: CASE EVENT DATE: 2006
